FAERS Safety Report 17332669 (Version 2)
Quarter: 2020Q2

REPORT INFORMATION
  Report Type: Report from Study
  Country: BR (occurrence: BR)
  Receive Date: 20200128
  Receipt Date: 20200406
  Transmission Date: 20200713
  Serious: Yes (Other)
  Sender: FDA-Public Use
  Company Number: BR-BIOGEN-2020BI00831552

PATIENT
  Age: 38 Year
  Sex: Female
  Weight: 46 kg

DRUGS (2)
  1. TYSABRI [Suspect]
     Active Substance: NATALIZUMAB
     Indication: MULTIPLE SCLEROSIS
     Route: 042
     Dates: start: 201904
  2. DIPYRONE [Concomitant]
     Active Substance: DIPYRONE
     Indication: PREMEDICATION
     Route: 065

REACTIONS (5)
  - Arrhythmia [Not Recovered/Not Resolved]
  - Intestinal haemorrhage [Not Recovered/Not Resolved]
  - Rash macular [Not Recovered/Not Resolved]
  - Constipation [Not Recovered/Not Resolved]
  - Oral mucosal blistering [Not Recovered/Not Resolved]

NARRATIVE: CASE EVENT DATE: 201910
